FAERS Safety Report 9914232 (Version 1)
Quarter: 2014Q1

REPORT INFORMATION
  Report Type: Spontaneous
  Country: US (occurrence: US)
  Receive Date: 20140220
  Receipt Date: 20140220
  Transmission Date: 20141002
  Serious: Yes (Other)
  Sender: FDA-Public Use
  Company Number: US-BAXTER-2014BAX007954

PATIENT
  Age: 45 Year
  Sex: Female

DRUGS (2)
  1. GAMMAGARD LIQUID [Suspect]
     Indication: HYPOGAMMAGLOBULINAEMIA
     Route: 042
  2. CYCLOPHOSPHAMIDE FOR INJECTION, USP [Suspect]
     Indication: HYPOGAMMAGLOBULINAEMIA
     Route: 065

REACTIONS (5)
  - Hypertensive emergency [Unknown]
  - Thrombosis in device [Unknown]
  - Sepsis [Unknown]
  - Drug intolerance [Unknown]
  - Thrombosis in device [Unknown]
